FAERS Safety Report 7560813-4 (Version None)
Quarter: 2011Q2

REPORT INFORMATION
  Report Type: 
  Country: None (occurrence: None)
  Receive Date: 20110621
  Receipt Date: 20110613
  Transmission Date: 20111010
  Serious: Yes (Death, Other)
  Sender: FDA-Public Use
  Company Number: TR-TEVA-287093ISR

PATIENT
  Age: 52 Year
  Sex: Male

DRUGS (4)
  1. CYCLOPHOSPHAMIDE [Suspect]
  2. RITUXIMAB [Suspect]
  3. VINCRISTINE [Suspect]
  4. PREDNISONE [Suspect]

REACTIONS (2)
  - HEPATIC FAILURE [None]
  - HEPATITIS B [None]
